FAERS Safety Report 13380296 (Version 3)
Quarter: 2017Q3

REPORT INFORMATION
  Report Type: Spontaneous
  Country: JP (occurrence: JP)
  Receive Date: 20170329
  Receipt Date: 20170801
  Transmission Date: 20171127
  Serious: Yes (Other)
  Sender: FDA-Public Use
  Company Number: JP-UCBSA-2017010918

PATIENT
  Age: 61 Year
  Sex: Female
  Weight: 59 kg

DRUGS (1)
  1. CIMZIA [Suspect]
     Active Substance: CERTOLIZUMAB PEGOL
     Indication: RHEUMATOID ARTHRITIS
     Dosage: 400 MG, MONTHLY (QM)
     Route: 058
     Dates: start: 20130710, end: 20170317

REACTIONS (2)
  - Off label use [Unknown]
  - Cutaneous sarcoidosis [Not Recovered/Not Resolved]

NARRATIVE: CASE EVENT DATE: 20130710
